FAERS Safety Report 7596955-7 (Version None)
Quarter: 2011Q3

REPORT INFORMATION
  Report Type: 
  Country: None (occurrence: None)
  Receive Date: 20110708
  Receipt Date: 20110704
  Transmission Date: 20111222
  Serious: Yes (Life-Threatening, Other)
  Sender: FDA-Public Use
  Company Number: DK-JNJFOC-20101206856

PATIENT
  Sex: Male

DRUGS (3)
  1. IMODIUM [Suspect]
     Indication: FLATULENCE
     Route: 048
     Dates: start: 20101120, end: 20101120
  2. CHOLESTAGEL [Concomitant]
     Route: 048
     Dates: start: 20101018
  3. IMODIUM [Suspect]
     Indication: DIARRHOEA
     Route: 048
     Dates: start: 20101120, end: 20101120

REACTIONS (4)
  - SELF INJURIOUS BEHAVIOUR [None]
  - EUPHORIC MOOD [None]
  - AGGRESSION [None]
  - OVERDOSE [None]
